FAERS Safety Report 19156311 (Version 1)
Quarter: 2021Q2

REPORT INFORMATION
  Report Type: Spontaneous
  Country: US (occurrence: US)
  Receive Date: 20210419
  Receipt Date: 20210419
  Transmission Date: 20210717
  Serious: No
  Sender: FDA-Public Use
  Company Number: US-ABBVIE-20K-163-3552332-00

PATIENT
  Sex: Male

DRUGS (1)
  1. LUPRON DEPOT?PED [Suspect]
     Active Substance: LEUPROLIDE ACETATE
     Indication: PRECOCIOUS PUBERTY
     Route: 030

REACTIONS (3)
  - Product administration error [Not Recovered/Not Resolved]
  - Product physical issue [Not Recovered/Not Resolved]
  - Product reconstitution quality issue [Not Recovered/Not Resolved]
